FAERS Safety Report 14663439 (Version 6)
Quarter: 2019Q1

REPORT INFORMATION
  Report Type: Spontaneous
  Country: US (occurrence: US)
  Receive Date: 20180321
  Receipt Date: 20190304
  Transmission Date: 20190417
  Serious: No
  Sender: FDA-Public Use
  Company Number: US-PFIZER INC-2018114174

PATIENT
  Age: 46 Year
  Sex: Female

DRUGS (2)
  1. GENOTROPIN [Suspect]
     Active Substance: SOMATROPIN
     Dosage: 1.0 MG, DAILY
     Dates: start: 20140306
  2. GENOTROPIN [Suspect]
     Active Substance: SOMATROPIN
     Indication: HYPOPITUITARISM
     Dosage: 1.1 MG, ONCE
     Route: 058

REACTIONS (4)
  - Vertigo [Unknown]
  - Full blood count increased [Unknown]
  - Malaise [Unknown]
  - Fatigue [Unknown]
